FAERS Safety Report 19473891 (Version 1)
Quarter: 2021Q2

REPORT INFORMATION
  Report Type: Spontaneous
  Country: IT (occurrence: IT)
  Receive Date: 20210629
  Receipt Date: 20210629
  Transmission Date: 20210717
  Serious: Yes (Other)
  Sender: FDA-Public Use
  Company Number: IT-ASTRAZENECA-2021A548012

PATIENT
  Age: 53 Year
  Sex: Male

DRUGS (6)
  1. AKINETON [Suspect]
     Active Substance: BIPERIDEN HYDROCHLORIDE
     Indication: PRODUCT USED FOR UNKNOWN INDICATION
     Dosage: 10.0DF UNKNOWN
     Route: 048
  2. LORAZEPAM. [Suspect]
     Active Substance: LORAZEPAM
     Indication: PRODUCT USED FOR UNKNOWN INDICATION
     Dosage: 10.0DF UNKNOWN
     Route: 048
  3. QUETIAPINA [QUETIAPINE] [Suspect]
     Active Substance: QUETIAPINE
     Indication: PRODUCT USED FOR UNKNOWN INDICATION
     Dosage: 14.0DF UNKNOWN
     Route: 048
  4. QUETIAPINA [QUETIAPINE] [Suspect]
     Active Substance: QUETIAPINE
     Indication: PRODUCT USED FOR UNKNOWN INDICATION
     Dosage: 14.0DF UNKNOWN
     Route: 048
  5. HALDOL [Suspect]
     Active Substance: HALOPERIDOL
     Indication: PRODUCT USED FOR UNKNOWN INDICATION
     Dosage: 4.0ML UNKNOWN
     Route: 048
  6. TACHIPIRINA [Suspect]
     Active Substance: ACETAMINOPHEN
     Indication: PRODUCT USED FOR UNKNOWN INDICATION
     Dosage: 8.0DF UNKNOWN
     Route: 048

REACTIONS (5)
  - Miosis [Unknown]
  - Sensory disturbance [Unknown]
  - Coma [Unknown]
  - Intentional self-injury [Unknown]
  - Overdose [Unknown]
